FAERS Safety Report 8845166 (Version 3)
Quarter: 2012Q4

REPORT INFORMATION
  Report Type: 
  Country: JP (occurrence: JP)
  Receive Date: 20121017
  Receipt Date: 20121214
  Transmission Date: 20130627
  Serious: Yes (Hospitalization, Other)
  Sender: FDA-Public Use
  Company Number: JP-OTSUKA-JP-2012-16560

PATIENT
  Age: 91 Year
  Sex: Male

DRUGS (9)
  1. SAMSCA [Suspect]
     Indication: CARDIAC FAILURE CHRONIC
     Dosage: 15 Mg milligram(s), qd
     Route: 048
  2. SAMSCA [Suspect]
     Dosage: 15 Mg milligram(s), qd
     Route: 048
     Dates: start: 20120924, end: 20120928
  3. SAMSCA [Suspect]
     Dosage: 15 Mg milligram(s), qd
     Route: 048
     Dates: start: 20121001, end: 20121005
  4. LASIX [Concomitant]
     Indication: CARDIAC FAILURE CHRONIC
     Dosage: 60 Mg milligram(s), qd
     Route: 048
     Dates: end: 20121009
  5. LASIX [Concomitant]
     Dosage: 20 Mg milligram(s), qd
     Route: 048
     Dates: start: 20121023
  6. LANIRAPID [Concomitant]
     Indication: CARDIAC FAILURE CHRONIC
     Dosage: 0.1 Mg milligram(s), qd
     Route: 048
  7. VASOLAN [Concomitant]
     Indication: ATRIAL FIBRILLATION
     Dosage: 40 Mg milligram(s), tid
     Route: 048
  8. WARFARIN [Concomitant]
     Indication: ATRIAL FIBRILLATION
     Dosage: 1 Mg milligram(s), qd
     Route: 048
  9. SUNRYTHM [Concomitant]
     Indication: ATRIAL FIBRILLATION
     Dosage: 25 Mg milligram(s), bid
     Route: 048

REACTIONS (4)
  - Somnolence [Recovered/Resolved]
  - Hypernatraemia [Recovered/Resolved]
  - Dehydration [Recovered/Resolved]
  - Overdose [Unknown]
